FAERS Safety Report 22335151 (Version 1)
Quarter: 2023Q2

REPORT INFORMATION
  Report Type: Spontaneous
  Country: GB (occurrence: GB)
  Receive Date: 20230518
  Receipt Date: 20230518
  Transmission Date: 20230722
  Serious: Yes (Hospitalization, Other)
  Sender: FDA-Public Use
  Company Number: GB-ROCHE-3347004

PATIENT
  Sex: Female
  Weight: 48.4 kg

DRUGS (7)
  1. BENDAMUSTINE [Suspect]
     Active Substance: BENDAMUSTINE
     Indication: Follicular lymphoma
     Dosage: 140 MG, OD FOR 2 DAYS
     Route: 042
     Dates: start: 20220620, end: 20220621
  2. RITUXIMAB [Suspect]
     Active Substance: RITUXIMAB
     Indication: Follicular lymphoma
     Dosage: 600 MG, 1 TOTAL
     Route: 041
     Dates: start: 20220620, end: 20220620
  3. ACYCLOVIR [Concomitant]
     Active Substance: ACYCLOVIR
     Dosage: 200 MG, TDS
     Route: 065
     Dates: start: 20220328
  4. COTRIMOXAZOLE [Concomitant]
     Active Substance: SULFAMETHOXAZOLE\TRIMETHOPRIM
     Dosage: 960 MG
     Route: 048
     Dates: start: 20220328
  5. METOCLOPRAMIDE [Concomitant]
     Active Substance: METOCLOPRAMIDE
     Indication: Nausea
     Dosage: 10 MG, TDS PRN
     Route: 048
     Dates: start: 20220328
  6. ONDANSETRON [Concomitant]
     Active Substance: ONDANSETRON
     Indication: Nausea
     Dosage: TDS PRN
     Route: 065
     Dates: start: 20220328
  7. TINZAPARIN [Concomitant]
     Active Substance: TINZAPARIN
     Dosage: 3500 UNITS, QD
     Route: 058
     Dates: start: 20220630

REACTIONS (1)
  - Febrile neutropenia [Not Recovered/Not Resolved]

NARRATIVE: CASE EVENT DATE: 20220630
